FAERS Safety Report 4697155-0 (Version None)
Quarter: 2005Q2

REPORT INFORMATION
  Report Type: 
  Country: None (occurrence: None)
  Receive Date: 20050622
  Receipt Date: 20050207
  Transmission Date: 20051028
  Serious: Yes (Other)
  Sender: FDA-Public Use
  Company Number: PHEH2005US01816

PATIENT
  Age: 74 Year
  Sex: Male

DRUGS (8)
  1. ZOMETA [Suspect]
     Indication: MULTIPLE MYELOMA
     Dosage: 4MG Q4WK
     Dates: start: 20040630, end: 20041230
  2. DIOVAN [Concomitant]
  3. NORVASC [Concomitant]
  4. LIPITOR [Concomitant]
  5. DOXIL [Concomitant]
     Dosage: 80MG QMO
     Dates: start: 20040630, end: 20041230
  6. VINCRISTINE [Concomitant]
     Dosage: 2MG QMO
     Route: 042
  7. DECADRON [Concomitant]
     Dosage: 40MGQD 4DAYS/MONTH
     Route: 048
  8. THALIDOMIDE [Concomitant]
     Dosage: 100MG QD
     Route: 048
     Dates: start: 20040630, end: 20041115

REACTIONS (5)
  - BONE DISORDER [None]
  - FATIGUE [None]
  - OSTEONECROSIS [None]
  - TOOTH EXTRACTION [None]
  - TOOTHACHE [None]
